FAERS Safety Report 24425578 (Version 2)
Quarter: 2025Q1

REPORT INFORMATION
  Report Type: Spontaneous
  Country: US (occurrence: US)
  Receive Date: 20241011
  Receipt Date: 20250218
  Transmission Date: 20250408
  Serious: No
  Sender: SANDOZ
  Company Number: US-GLAXOSMITHKLINE-USCH2024AMR001085

PATIENT
  Sex: Female

DRUGS (1)
  1. DICLOFENAC SODIUM [Suspect]
     Active Substance: DICLOFENAC SODIUM
     Indication: Pain
     Route: 065

REACTIONS (1)
  - Hypersensitivity [Unknown]
